FAERS Safety Report 8301931-2 (Version None)
Quarter: 2012Q2

REPORT INFORMATION
  Report Type: 
  Country: None (occurrence: None)
  Receive Date: 20120420
  Receipt Date: 20120412
  Transmission Date: 20120825
  Serious: Yes (Death, Other)
  Sender: FDA-Public Use
  Company Number: CA-ROCHE-801740

PATIENT
  Sex: Male
  Weight: 106.24 kg

DRUGS (5)
  1. TEMODAL [Concomitant]
  2. INNOHEP [Concomitant]
  3. AVASTIN [Suspect]
     Indication: OLIGODENDROGLIOMA
     Route: 042
     Dates: start: 20110603, end: 20110805
  4. KEPPRA [Concomitant]
  5. DECADRON [Concomitant]

REACTIONS (2)
  - NEOPLASM [None]
  - DEATH [None]
